FAERS Safety Report 11312175 (Version 1)
Quarter: 2015Q3

REPORT INFORMATION
  Report Type: Spontaneous
  Country: US (occurrence: None)
  Receive Date: 20150723
  Receipt Date: 20150723
  Transmission Date: 20151125
  Serious: Yes (Hospitalization, Other)
  Sender: FDA-Public Use
  Company Number: ABR_02300_2015

PATIENT
  Sex: Male

DRUGS (12)
  1. EDARBI [Suspect]
     Active Substance: AZILSARTAN KAMEDOXOMIL
     Indication: HYPERTENSION
     Route: 048
     Dates: start: 2015
  2. PROBENECID. [Concomitant]
     Active Substance: PROBENECID
  3. OXYBUTIN [Concomitant]
     Active Substance: OXYBUTYNIN
  4. HYDROCODONE/APAP [Concomitant]
     Active Substance: ACETAMINOPHEN\HYDROCODONE BITARTRATE
  5. VITAMIN B [Concomitant]
     Active Substance: VITAMIN B
  6. AMLODIPINE [Concomitant]
     Active Substance: AMLODIPINE BESYLATE
  7. BYSTOLIC [Concomitant]
     Active Substance: NEBIVOLOL HYDROCHLORIDE
  8. FOLIC ACID. [Concomitant]
     Active Substance: FOLIC ACID
  9. AMOXICILLIN. [Concomitant]
     Active Substance: AMOXICILLIN
  10. ACETYLSALICYLIC ACID [Concomitant]
     Active Substance: ASPIRIN
  11. GABAPENTIN. [Concomitant]
     Active Substance: GABAPENTIN
  12. IRON SUPPLEMENT WITH VIT C + HERBS [Concomitant]

REACTIONS (8)
  - Drug ineffective [None]
  - Arterial injury [None]
  - Joint lock [None]
  - Product container seal issue [None]
  - Tooth extraction [None]
  - Joint dislocation [None]
  - Nephrolithiasis [None]
  - Blood pressure increased [None]

NARRATIVE: CASE EVENT DATE: 2015
